FAERS Safety Report 7648933-7 (Version None)
Quarter: 2011Q3

REPORT INFORMATION
  Report Type: 
  Country: None (occurrence: None)
  Receive Date: 20110801
  Receipt Date: 20110722
  Transmission Date: 20111222
  Serious: Yes (Hospitalization)
  Sender: FDA-Public Use
  Company Number: FR-GENENTECH-322062

PATIENT
  Age: 47 Year
  Sex: Male

DRUGS (4)
  1. ROFERON-A 3 [Suspect]
     Indication: LYMPHOMA
     Dosage: UNK
     Route: 023
     Dates: start: 20080401, end: 20080601
  2. MABTHERA [Suspect]
     Dosage: UNK
     Route: 042
     Dates: start: 20090601
  3. MABTHERA [Suspect]
     Indication: LYMPHOMA
     Dosage: 375 MG/M2, Q4W
     Route: 042
     Dates: start: 20070315, end: 20080201
  4. ROFERON-A 3 [Suspect]
     Dosage: UNK
     Route: 023

REACTIONS (1)
  - BASAL CELL CARCINOMA [None]
